FAERS Safety Report 8029093-X (Version None)
Quarter: 2012Q1

REPORT INFORMATION
  Report Type: 
  Country: None (occurrence: None)
  Receive Date: 20120106
  Receipt Date: 20111222
  Transmission Date: 20120608
  Serious: Yes (Death)
  Sender: FDA-Public Use
  Company Number: IT-CELGENEUS-083-21880-11123119

PATIENT
  Sex: Female

DRUGS (3)
  1. EXJADE [Concomitant]
     Route: 065
     Dates: start: 20070601
  2. REVLIMID [Suspect]
     Dosage: 10 MILLIGRAM
     Route: 048
     Dates: start: 20071116
  3. REVLIMID [Suspect]
     Dosage: 10 MILLIGRAM
     Route: 048
     Dates: start: 20091026, end: 20091115

REACTIONS (1)
  - HEPATIC NEOPLASM MALIGNANT NON-RESECTABLE [None]
